FAERS Safety Report 16740659 (Version 1)
Quarter: 2019Q3

REPORT INFORMATION
  Report Type: Spontaneous
  Country: US (occurrence: US)
  Receive Date: 20190826
  Receipt Date: 20190826
  Transmission Date: 20191005
  Serious: No
  Sender: FDA-Public Use
  Company Number: US-PFIZER INC-2019363425

PATIENT
  Age: 52 Year
  Sex: Female

DRUGS (1)
  1. PREGABALIN. [Suspect]
     Active Substance: PREGABALIN
     Dosage: 50 MG, UNK

REACTIONS (3)
  - Somnolence [Unknown]
  - Breakthrough pain [Unknown]
  - Hypoaesthesia oral [Unknown]
